FAERS Safety Report 12934343 (Version 2)
Quarter: 2016Q4

REPORT INFORMATION
  Report Type: Spontaneous
  Country: US (occurrence: US)
  Receive Date: 20161111
  Receipt Date: 20161128
  Transmission Date: 20170207
  Serious: No
  Sender: FDA-Public Use
  Company Number: US-TEVA-703169USA

PATIENT
  Age: 83 Year
  Sex: Female
  Weight: 54.48 kg

DRUGS (2)
  1. NUVIGIL [Suspect]
     Active Substance: ARMODAFINIL
     Dosage: 125 MILLIGRAM DAILY;
     Route: 065
     Dates: start: 20161008, end: 20161010
  2. NUVIGIL [Suspect]
     Active Substance: ARMODAFINIL
     Indication: FATIGUE
     Dosage: 250 MILLIGRAM DAILY;
     Route: 065
     Dates: start: 20161007, end: 20161010

REACTIONS (4)
  - Wrong technique in product usage process [Not Recovered/Not Resolved]
  - Dizziness [Not Recovered/Not Resolved]
  - Incorrect dosage administered [Not Recovered/Not Resolved]
  - Nausea [Not Recovered/Not Resolved]

NARRATIVE: CASE EVENT DATE: 20161007
